FAERS Safety Report 22118163 (Version 2)
Quarter: 2023Q1

REPORT INFORMATION
  Report Type: Report from Study
  Country: US (occurrence: US)
  Receive Date: 20230321
  Receipt Date: 20230330
  Transmission Date: 20230417
  Serious: No
  Sender: FDA-Public Use
  Company Number: US-002147023-NVSC2023US058849

PATIENT
  Sex: Male

DRUGS (3)
  1. ENTRESTO [Suspect]
     Active Substance: SACUBITRIL\VALSARTAN
     Indication: Cardiac arrest
     Dosage: 1 DOSAGE FORM, BID ( HAS BEEN TAKING ENTRESTO FOR APPROXIMATELY 3 MONTHS)
     Route: 048
  2. METOPROLOL [Suspect]
     Active Substance: METOPROLOL
     Indication: Product used for unknown indication
     Dosage: UNK
     Route: 065
  3. METOPROLOL [Suspect]
     Active Substance: METOPROLOL
     Dosage: 0.5 DOSAGE FORM
     Route: 065

REACTIONS (4)
  - Dizziness postural [Unknown]
  - Feeling drunk [Unknown]
  - Cardiac disorder [Unknown]
  - Product use in unapproved indication [Unknown]
